FAERS Safety Report 22609691 (Version 1)
Quarter: 2023Q2

REPORT INFORMATION
  Report Type: Spontaneous
  Country: US (occurrence: None)
  Receive Date: 20230615
  Receipt Date: 20230615
  Transmission Date: 20230722
  Serious: No
  Sender: FDA-Public Use
  Company Number: None

PATIENT
  Age: 61 Year
  Sex: Female
  Weight: 76.05 kg

DRUGS (6)
  1. NITROFURANTOIN MONOHYDRATE MACROCRYSTALS [Suspect]
     Active Substance: NITROFURANTOIN\NITROFURANTOIN MONOHYDRATE
     Dates: start: 20230606, end: 20230613
  2. PROLIA [Concomitant]
     Active Substance: DENOSUMAB
  3. Proprafanone [Concomitant]
  4. ELIQUIS [Concomitant]
     Active Substance: APIXABAN
  5. FISH OIL [Concomitant]
     Active Substance: FISH OIL
  6. CALCIUM\VITAMIN D [Concomitant]
     Active Substance: CALCIUM\VITAMIN D

REACTIONS (1)
  - Hypersensitivity [None]

NARRATIVE: CASE EVENT DATE: 20230612
